FAERS Safety Report 5209217-X (Version None)
Quarter: 2007Q1

REPORT INFORMATION
  Report Type: 
  Country: None (occurrence: None)
  Receive Date: 20070111
  Receipt Date: 20061218
  Transmission Date: 20070707
  Serious: Yes (Death)
  Sender: FDA-Public Use
  Company Number: GXKR2006US08276

PATIENT
  Age: 32 Year
  Sex: Male

DRUGS (3)
  1. FENTANYL [Suspect]
  2. OXYCODONE HYDROCHLORIDE [Suspect]
  3. FLUOXETINE [Suspect]

REACTIONS (6)
  - ACCIDENTAL POISONING [None]
  - DRUG ABUSER [None]
  - DYSPNOEA [None]
  - ILL-DEFINED DISORDER [None]
  - INTENTIONAL DRUG MISUSE [None]
  - OEDEMA [None]
